FAERS Safety Report 6097898-0 (Version None)
Quarter: 2009Q1

REPORT INFORMATION
  Report Type: 
  Country: None (occurrence: None)
  Receive Date: 20090225
  Receipt Date: 20090213
  Transmission Date: 20090719
  Serious: Yes (Disabling)
  Sender: FDA-Public Use
  Company Number: 2009AL000807

PATIENT
  Age: 59 Year
  Sex: Male

DRUGS (6)
  1. LIDOCAINE HYDROCHLORIDE 2% [Suspect]
     Indication: BACK PAIN
     Dosage: 5 PCT; QD; TOP
     Route: 061
     Dates: start: 20081027
  2. LANSOPRAZOLE [Concomitant]
  3. AMITRIPTYLINE [Concomitant]
  4. OXYCONTIN [Concomitant]
  5. GABAPENTIN [Concomitant]
  6. PHENYTOIN [Concomitant]

REACTIONS (6)
  - BLISTER [None]
  - DRUG INEFFECTIVE [None]
  - DRUG TOLERANCE DECREASED [None]
  - ERYTHEMA [None]
  - PRURITUS [None]
  - SKIN ULCER [None]
